FAERS Safety Report 23246940 (Version 2)
Quarter: 2024Q1

REPORT INFORMATION
  Report Type: Report from Study
  Country: US (occurrence: US)
  Receive Date: 20231130
  Receipt Date: 20240122
  Transmission Date: 20240409
  Serious: Yes (Death)
  Sender: FDA-Public Use
  Company Number: US-PFIZER INC-PV202300194894

PATIENT
  Age: 75 Year
  Sex: Male
  Weight: 119 kg

DRUGS (31)
  1. VYNDAQEL [Suspect]
     Active Substance: TAFAMIDIS MEGLUMINE
     Indication: Cardiomyopathy
     Dosage: 80 MG, DAILY
     Route: 048
     Dates: start: 20200528
  2. VYNDAQEL [Suspect]
     Active Substance: TAFAMIDIS MEGLUMINE
     Indication: Cardiac amyloidosis
  3. TYLENOL [Concomitant]
     Active Substance: ACETAMINOPHEN
     Dosage: 325 MG (TAKE 1 TABLET BY MOUTH)
     Route: 048
  4. ALBUTEROL [Concomitant]
     Active Substance: ALBUTEROL
     Dosage: UNK
     Route: 055
     Dates: start: 20221027
  5. AMMONIUM LACTATE [Concomitant]
     Active Substance: AMMONIUM LACTATE
     Dosage: APPLY 1 APPLICATION. TOPICALLY
     Route: 061
  6. LIPITOR [Concomitant]
     Active Substance: ATORVASTATIN CALCIUM
     Dosage: TAKE 1 TABLET BY MOUTH NIGHTLY
     Route: 048
     Dates: start: 20180711
  7. ZITHROMAX [Concomitant]
     Active Substance: AZITHROMYCIN DIHYDRATE
     Dosage: UNK
  8. CALCIUM MAGNESIUM ZINC [CALCIUM;MAGNESIUM;ZINC] [Concomitant]
     Dosage: TAKE 1 TABLET BY MOUTH DAILY
     Route: 048
  9. COREG [Concomitant]
     Active Substance: CARVEDILOL
     Dosage: TAKE 1 TABLET BY MOUTH 2 TIMES DAILY
     Route: 048
     Dates: start: 20190614
  10. KEFLEX [Concomitant]
     Active Substance: CEPHALEXIN
     Dosage: THREE TIMES A DAY
     Dates: start: 20230618
  11. CHOLECALCIFEROL [Concomitant]
     Active Substance: CHOLECALCIFEROL
     Dosage: UNK
     Dates: start: 20230928
  12. CIPRO [Concomitant]
     Active Substance: CIPROFLOXACIN HYDROCHLORIDE
     Dosage: TWICE A DAY
     Dates: start: 20230127
  13. COLACE [Concomitant]
     Active Substance: DOCUSATE SODIUM
     Dosage: UNK
     Dates: start: 20231026
  14. CYMBALTA [Concomitant]
     Active Substance: DULOXETINE HYDROCHLORIDE
     Dosage: TAKE 2 CAPSULES BY MOUTH DAILY
     Route: 048
     Dates: start: 20210202
  15. CYMBALTA [Concomitant]
     Active Substance: DULOXETINE HYDROCHLORIDE
     Dosage: 60 MG DR CAPSULE
     Dates: start: 20231026
  16. ADVAIR HFA [Concomitant]
     Active Substance: FLUTICASONE PROPIONATE\SALMETEROL XINAFOATE
     Dosage: 250-50 MCG/PUFF DISKUS INHALER
     Route: 055
     Dates: start: 20221104
  17. LAMICTAL [Concomitant]
     Active Substance: LAMOTRIGINE
     Dosage: TAKE 2 TABLETS BY MOUTH DAILY
     Route: 048
  18. MAGNESIUM [Concomitant]
     Active Substance: MAGNESIUM
     Dosage: TAKE 400 MG BY MOUTH
     Route: 048
  19. ROBAXIN [Concomitant]
     Active Substance: METHOCARBAMOL
     Dosage: TAKE 1 TABLET BY MOUTH AS NEEDED.
     Route: 048
  20. NARCAN [Concomitant]
     Active Substance: NALOXONE HYDROCHLORIDE
     Dosage: NASAL ROUTE AS NEEDED FOR DECREASED RESPONSIVENESS
     Route: 045
     Dates: start: 20190219
  21. MYCOLOG II [Concomitant]
     Dosage: UNK
     Dates: start: 20221004
  22. ZYPREXA [Concomitant]
     Active Substance: OLANZAPINE
     Dosage: 2 TABLETS NIGHTLY
     Dates: start: 20221107
  23. DITROPAN XL [Concomitant]
     Active Substance: OXYBUTYNIN CHLORIDE
     Dosage: TAKE 2 TABLETS BY MOUTH DAILY
     Route: 048
  24. DITROPAN XL [Concomitant]
     Active Substance: OXYBUTYNIN CHLORIDE
     Dosage: 10 MG 24 HR
     Dates: start: 20231026
  25. PROTONIX [Concomitant]
     Active Substance: PANTOPRAZOLE SODIUM
     Dosage: TAKE 1 TABLET BY MOUTH DAILY
     Route: 048
  26. MIRALAX [Concomitant]
     Active Substance: POLYETHYLENE GLYCOL 3350
     Dosage: TAKE 17 G BY MOUTH
     Route: 048
  27. MINERALS\VITAMINS [Concomitant]
     Active Substance: MINERALS\VITAMINS
     Dosage: 27-0.8 MG (TAKE 1 TABLET BY MOUTH DAILY)
     Route: 048
  28. ALDACTONE [Concomitant]
     Active Substance: SPIRONOLACTONE
     Dosage: TAKE 1 TABLET BY MOUTH DAILY
     Route: 048
  29. BACTRIM DS [Concomitant]
     Active Substance: SULFAMETHOXAZOLE\TRIMETHOPRIM
     Dosage: 800-160 MG PER TABLET (TAKE 1 TABLET BY MOUTH DAILY)
     Route: 048
  30. FLOMAX [Concomitant]
     Active Substance: TAMSULOSIN HYDROCHLORIDE
     Dosage: TAKE 1 CAPSULE BY MOUTH NIGHTLY
     Route: 048
     Dates: start: 20221205
  31. COUMADIN [Concomitant]
     Active Substance: WARFARIN SODIUM
     Dosage: TAKE 1 TABLET BY MOUTH TWICE A WEEK MONDAY AND THURSDAY
     Route: 048

REACTIONS (2)
  - Cardiac failure [Fatal]
  - Sudden cardiac death [Fatal]
